FAERS Safety Report 6774288-6 (Version None)
Quarter: 2010Q2

REPORT INFORMATION
  Report Type: 
  Country: None (occurrence: None)
  Receive Date: 20100617
  Receipt Date: 20100607
  Transmission Date: 20101027
  Serious: Yes (Other)
  Sender: FDA-Public Use
  Company Number: AU-PFIZER INC-2010071102

PATIENT
  Sex: Female

DRUGS (1)
  1. CHAMPIX [Suspect]
     Dosage: UNK

REACTIONS (6)
  - AGITATION [None]
  - DEPRESSION [None]
  - INSOMNIA [None]
  - MENTAL DISORDER [None]
  - NIGHTMARE [None]
  - SUICIDAL BEHAVIOUR [None]
